FAERS Safety Report 5332707-6 (Version None)
Quarter: 2007Q2

REPORT INFORMATION
  Report Type: 
  Country: None (occurrence: None)
  Receive Date: 20070523
  Receipt Date: 20070511
  Transmission Date: 20071010
  Serious: Yes (Other)
  Sender: FDA-Public Use
  Company Number: US-PFIZER INC-2007038979

PATIENT
  Sex: Female

DRUGS (2)
  1. CHANTIX [Suspect]
  2. ANTIHYPERTENSIVES [Concomitant]

REACTIONS (3)
  - COUGH [None]
  - PHARYNGEAL OEDEMA [None]
  - VOMITING [None]
